FAERS Safety Report 20903008 (Version 4)
Quarter: 2022Q2

REPORT INFORMATION
  Report Type: Spontaneous
  Country: PT (occurrence: PT)
  Receive Date: 20220601
  Receipt Date: 20220622
  Transmission Date: 20220721
  Serious: Yes (Other)
  Sender: FDA-Public Use
  Company Number: PT-TAKEDA-2022TEU003909

PATIENT
  Age: 74 Year
  Sex: Male

DRUGS (17)
  1. PANTOPRAZOLE [Suspect]
     Active Substance: PANTOPRAZOLE
     Indication: Peptic ulcer
     Dosage: 20 MG, 1X/DAY
     Route: 065
  2. BUDESONIDE\FORMOTEROL [Suspect]
     Active Substance: BUDESONIDE\FORMOTEROL
     Dosage: 160/45 MICROGRAM, QD
     Route: 055
  3. METFORMIN [Concomitant]
     Active Substance: METFORMIN HYDROCHLORIDE
     Dosage: 1700 MILLIGRAM, QD
  4. METFORMIN [Concomitant]
     Active Substance: METFORMIN HYDROCHLORIDE
     Dosage: 700 MILLIGRAM
  5. SITAGLIPTIN [Concomitant]
     Active Substance: SITAGLIPTIN
     Dosage: 100 MG, 1X/DAY
  6. INDAPAMIDE [Concomitant]
     Active Substance: INDAPAMIDE
     Dosage: 1.5 MG, 1X/DAY
  7. INDAPAMIDE [Concomitant]
     Active Substance: INDAPAMIDE
     Dosage: 5 MG, 1X/DAY
  8. INDAPAMIDE [Concomitant]
     Active Substance: INDAPAMIDE
     Dosage: 20 MG
  9. VALSARTAN [Concomitant]
     Active Substance: VALSARTAN
     Dosage: 160 MILLIGRAM, QD
     Route: 055
  10. LERCANIDIPINE [Concomitant]
     Active Substance: LERCANIDIPINE
     Dosage: 20 MILLIGRAM, QD
  11. TAMSULOSIN [Concomitant]
     Active Substance: TAMSULOSIN
     Dosage: 0.4 MG, 1X/DAY
  12. ATORVASTATIN [Concomitant]
     Active Substance: ATORVASTATIN
     Dosage: 20 MG, 1X/DAY
  13. ALENDRONIC ACID [Concomitant]
     Active Substance: ALENDRONIC ACID
     Dosage: 10 MG, 1X/DAY
  14. TANSULOSINA [Concomitant]
     Dosage: 0.5 MG
  15. TANSULOSINA [Concomitant]
     Dosage: 0.4 MG, 1X/DAY
  16. PANTOPRAZOLE [Concomitant]
     Active Substance: PANTOPRAZOLE
     Dosage: 20 MG, 1X/DAY
  17. BUDESONIDE\FORMOTEROL FUMARATE [Concomitant]
     Active Substance: BUDESONIDE\FORMOTEROL FUMARATE
     Dosage: UNK, 1X/DAY (160/45 MICROGRAM)

REACTIONS (2)
  - Intentional product misuse [Unknown]
  - Oesophageal candidiasis [Recovered/Resolved]
